FAERS Safety Report 8371238-6 (Version None)
Quarter: 2012Q1

REPORT INFORMATION
  Report Type: 
  Country: None (occurrence: None)
  Receive Date: 20120323
  Receipt Date: 20110329
  Transmission Date: 20120608
  Serious: Yes (Other)
  Sender: FDA-Public Use
  Company Number: 163-21880-10111629

PATIENT
  Age: 63 Year
  Sex: Female

DRUGS (7)
  1. FUROSEMIDE [Concomitant]
  2. EPIDURAL (ANALGESICS AND ANESTHETICS) [Concomitant]
  3. XANAX [Concomitant]
  4. OXYCONTIN [Concomitant]
  5. PULMICORT [Concomitant]
  6. CLONAZEPAM [Concomitant]
  7. REVLIMID [Suspect]
     Indication: MULTIPLE MYELOMA
     Dosage: 10 MG, 1 IN 1 D, PO
     Route: 048
     Dates: start: 20091103, end: 20101110

REACTIONS (1)
  - DEEP VEIN THROMBOSIS [None]
